FAERS Safety Report 8240356-5 (Version None)
Quarter: 2012Q1

REPORT INFORMATION
  Report Type: 
  Country: None (occurrence: None)
  Receive Date: 20120328
  Receipt Date: 20120319
  Transmission Date: 20120608
  Serious: Yes (Other)
  Sender: FDA-Public Use
  Company Number: ES-BRISTOL-MYERS SQUIBB COMPANY-16464554

PATIENT
  Sex: Female

DRUGS (2)
  1. ENTECAVIR [Suspect]
     Indication: HEPATITIS B
  2. ENTECAVIR [Suspect]
     Indication: HEPATITIS D

REACTIONS (1)
  - HEPATITIS D [None]
